FAERS Safety Report 7912455-6 (Version None)
Quarter: 2011Q4

REPORT INFORMATION
  Report Type: 
  Country: None (occurrence: None)
  Receive Date: 20111114
  Receipt Date: 20111102
  Transmission Date: 20120403
  Serious: Yes (Hospitalization)
  Sender: FDA-Public Use
  Company Number: US-BAYER-2011-041367

PATIENT
  Age: 17 Year
  Sex: Female
  Weight: 63.946 kg

DRUGS (30)
  1. YASMIN [Suspect]
     Indication: PREMENSTRUAL SYNDROME
  2. NASONEX [Concomitant]
     Dosage: UNK UNK, BID
  3. ACETAMINOPHEN [Concomitant]
     Dosage: 650 MG, UNK
     Route: 048
     Dates: start: 20071221
  4. SULFAMETHOXAZOLE AND TRIMETHOPRIM DOUBLE STRENGTH [Concomitant]
     Dosage: UNK
     Route: 048
     Dates: start: 20071221
  5. AMITRIPTYLINE HCL [Concomitant]
     Route: 048
  6. ADVAIR DISKUS 100/50 [Concomitant]
     Dosage: UNK UNK, BID
  7. CYCLOBENZAPRINE HYDROCHLORIDE [Concomitant]
     Dosage: 5 MG, UNK
     Route: 048
  8. MULTI-VITAMIN [Concomitant]
     Dosage: UNK UNK, QD
     Route: 048
  9. PIPTZI 3.37 +#8211; ZOSYN 3GM [Concomitant]
     Dosage: UNK
     Route: 042
     Dates: start: 20071221
  10. ULTRASE MT20 [Concomitant]
     Route: 048
  11. PULMOZYME [Concomitant]
  12. DIFLUCAN [Concomitant]
     Dosage: 150 MG, UNK
     Route: 048
     Dates: start: 20071225
  13. AZITHROMYCIN [Concomitant]
     Indication: INFECTION
     Dosage: 500 MG, UNK
     Dates: start: 20071201, end: 20080101
  14. YASMIN [Suspect]
     Indication: ACNE
     Dosage: UNK
     Dates: start: 20070301, end: 20080301
  15. ALBUTEROL SULFATE [Concomitant]
     Indication: ASTHMA
     Dosage: UNK
     Dates: start: 20030101, end: 20080101
  16. ONDANSETRON [Concomitant]
     Dosage: 4 MG, UNK
     Route: 042
     Dates: start: 20071223
  17. PREVACID [Concomitant]
     Indication: GASTROOESOPHAGEAL REFLUX DISEASE
     Dosage: 30 MG, BID
     Route: 048
     Dates: start: 20070701, end: 20080301
  18. DROSPIRENONE AND ETHINYL ESTRADIOL [Suspect]
     Indication: PREMENSTRUAL SYNDROME
  19. RHINOCORT [Concomitant]
  20. AQUADEK [Concomitant]
     Dosage: UNK UNK, BID
     Route: 048
  21. OXYCODONE HCL [Concomitant]
     Dosage: 5 MG, UNK
  22. MERREM [Concomitant]
     Dosage: 2000 MG, UNK
     Route: 042
  23. CIPROFLOXACIN [Concomitant]
     Dosage: 750 MG, BID
     Route: 048
     Dates: start: 20071101, end: 20071221
  24. DROSPIRENONE AND ETHINYL ESTRADIOL [Suspect]
     Indication: ACNE
     Dosage: UNK
     Dates: start: 20080401, end: 20081101
  25. SUNMARK ALLERGY RELIEF [Concomitant]
     Dosage: 10 MG, UNK
     Route: 048
  26. AZACTAM [Concomitant]
     Dosage: 2600 MG, UNK
     Route: 042
  27. TOBI [Concomitant]
     Dosage: 300 MG, BID
  28. HYDROXIZINE [Concomitant]
     Indication: MULTIPLE ALLERGIES
     Dosage: 25 MG, UNK
     Route: 048
     Dates: start: 20030101, end: 20080101
  29. LORATADINE [Concomitant]
     Indication: MULTIPLE ALLERGIES
     Dosage: 10 MG, UNK
     Dates: start: 20050101, end: 20080101
  30. LACTINEX [Concomitant]
     Dosage: UNK UNK, TID
     Route: 048
     Dates: start: 20071221

REACTIONS (8)
  - GALLBLADDER INJURY [None]
  - CHOLELITHIASIS [None]
  - INJURY [None]
  - ANXIETY [None]
  - ANHEDONIA [None]
  - PAIN [None]
  - CHOLECYSTITIS ACUTE [None]
  - EMOTIONAL DISTRESS [None]
